APPROVED DRUG PRODUCT: SUPRAX
Active Ingredient: CEFIXIME
Strength: 400MG **Federal Register determination that product was not discontinued or withdrawn for safety or effectiveness reasons**
Dosage Form/Route: CAPSULE;ORAL
Application: N203195 | Product #001 | TE Code: AB
Applicant: LUPIN LTD
Approved: Jun 1, 2012 | RLD: Yes | RS: Yes | Type: RX